FAERS Safety Report 5524425-6 (Version None)
Quarter: 2007Q4

REPORT INFORMATION
  Report Type: 
  Country: None (occurrence: None)
  Receive Date: 20071122
  Receipt Date: 20071113
  Transmission Date: 20080405
  Serious: Yes (Hospitalization, Other)
  Sender: FDA-Public Use
  Company Number: US-PFIZER INC-2007097372

PATIENT
  Sex: Female
  Weight: 47.272 kg

DRUGS (5)
  1. CHANTIX [Suspect]
     Indication: SMOKING CESSATION THERAPY
     Dates: start: 20071019, end: 20071109
  2. WELLBUTRIN [Interacting]
  3. MUCINEX [Interacting]
  4. ATIVAN [Concomitant]
  5. BENADRYL [Concomitant]

REACTIONS (3)
  - CONVULSION [None]
  - DRUG INTERACTION [None]
  - SEROTONIN SYNDROME [None]
